FAERS Safety Report 15261705 (Version 1)
Quarter: 2018Q3

REPORT INFORMATION
  Report Type: Report from Study
  Country: US (occurrence: US)
  Receive Date: 20180809
  Receipt Date: 20180809
  Transmission Date: 20181010
  Serious: No
  Sender: FDA-Public Use
  Company Number: US-AEGERION PHARMACEUTICAL, INC-AEGR003381

PATIENT
  Age: 70 Year
  Sex: Female
  Weight: 72.56 kg

DRUGS (10)
  1. VITAMIN E [Concomitant]
     Active Substance: .ALPHA.-TOCOPHEROL
     Indication: PRODUCT USED FOR UNKNOWN INDICATION
  2. COENZYME Q10 [Concomitant]
     Active Substance: UBIDECARENONE
     Indication: PRODUCT USED FOR UNKNOWN INDICATION
  3. OMEGA 3?6?9 [Concomitant]
     Active Substance: FISH OIL
     Indication: PRODUCT USED FOR UNKNOWN INDICATION
  4. ALENDRONATE SODIUM. [Concomitant]
     Active Substance: ALENDRONATE SODIUM
     Indication: PRODUCT USED FOR UNKNOWN INDICATION
  5. JUXTAPID [Suspect]
     Active Substance: LOMITAPIDE MESYLATE
     Indication: TYPE IIA HYPERLIPIDAEMIA
     Dosage: 5 MG, QD
     Route: 048
     Dates: start: 20141202
  6. JUXTAPID [Suspect]
     Active Substance: LOMITAPIDE MESYLATE
     Dosage: 5 MG, QD
     Route: 048
     Dates: start: 201705
  7. VITAMIN D3 [Concomitant]
     Active Substance: CHOLECALCIFEROL
     Indication: PRODUCT USED FOR UNKNOWN INDICATION
  8. JUXTAPID [Suspect]
     Active Substance: LOMITAPIDE MESYLATE
     Dosage: 10 MG, QD
     Route: 048
     Dates: start: 201708
  9. JUXTAPID [Suspect]
     Active Substance: LOMITAPIDE MESYLATE
     Dosage: 10 MG, UNK
     Route: 048
     Dates: start: 20150318
  10. ASPIRIN. [Concomitant]
     Active Substance: ASPIRIN
     Indication: PRODUCT USED FOR UNKNOWN INDICATION

REACTIONS (5)
  - Therapy cessation [Recovered/Resolved]
  - Diarrhoea [Recovering/Resolving]
  - Asthenia [Not Recovered/Not Resolved]
  - Malaise [Recovering/Resolving]
  - Chills [Recovering/Resolving]

NARRATIVE: CASE EVENT DATE: 20171001
